FAERS Safety Report 10207260 (Version 1)
Quarter: 2014Q2

REPORT INFORMATION
  Report Type: Report from Study
  Country: TN (occurrence: TN)
  Receive Date: 20140530
  Receipt Date: 20140530
  Transmission Date: 20141212
  Serious: Yes (Death)
  Sender: FDA-Public Use
  Company Number: TN-SA-2014SA068341

PATIENT
  Age: 80 Year
  Sex: Male

DRUGS (5)
  1. AMLOR [Concomitant]
     Route: 048
  2. GLUCOPHAGE [Concomitant]
     Route: 048
  3. CORVASAL [Concomitant]
     Route: 048
  4. CRESTOR [Concomitant]
     Route: 048
  5. PLAVIX [Suspect]
     Indication: ANGINA UNSTABLE
     Dosage: DOSE: 75/DAY
     Route: 048
     Dates: start: 20140114, end: 20140115

REACTIONS (1)
  - Ventricular fibrillation [Fatal]
